FAERS Safety Report 5637119-3 (Version None)
Quarter: 2008Q1

REPORT INFORMATION
  Report Type: 
  Country: None (occurrence: None)
  Receive Date: 20080225
  Receipt Date: 20080212
  Transmission Date: 20080703
  Serious: Yes (Hospitalization)
  Sender: FDA-Public Use
  Company Number: DE-ROCHE-521970

PATIENT
  Age: 65 Year
  Sex: Female

DRUGS (1)
  1. ROFERON-A [Suspect]
     Indication: MALIGNANT MELANOMA
     Route: 058
     Dates: start: 20070101, end: 20070901

REACTIONS (1)
  - AUTOIMMUNE THYROIDITIS [None]
